FAERS Safety Report 18862582 (Version 2)
Quarter: 2021Q1

REPORT INFORMATION
  Report Type: Spontaneous
  Country: JP (occurrence: JP)
  Receive Date: 20210209
  Receipt Date: 20210225
  Transmission Date: 20210420
  Serious: Yes (Hospitalization)
  Sender: FDA-Public Use
  Company Number: JP-TAKEDA-2021TJP002566

PATIENT
  Age: 87 Year
  Sex: Female
  Weight: 42 kg

DRUGS (8)
  1. REBAMIPIDE [Concomitant]
     Active Substance: REBAMIPIDE
     Indication: GASTRITIS
     Dosage: 300 MILLIGRAM
     Route: 048
  2. TRINTELLIX [Suspect]
     Active Substance: VORTIOXETINE HYDROBROMIDE
     Indication: DEPRESSION
     Dosage: 10 MILLIGRAM, QD
     Route: 048
     Dates: start: 20210119, end: 20210127
  3. TIAPRIDE [TIAPRIDE HYDROCHLORIDE] [Concomitant]
     Active Substance: TIAPRIDE
     Dosage: 25 MILLIGRAM, BID
     Route: 065
     Dates: end: 20210119
  4. SULPIRIDE [Concomitant]
     Active Substance: SULPIRIDE
     Dosage: 50 MILLIGRAM
     Route: 065
     Dates: start: 20210119
  5. AMITIZA [Concomitant]
     Active Substance: LUBIPROSTONE
     Indication: CONSTIPATION
     Dosage: 12 MICROGRAM
     Route: 048
  6. CELECOX [Concomitant]
     Active Substance: CELECOXIB
     Indication: GASTRITIS
     Dosage: 200 MILLIGRAM
     Route: 048
  7. BILANOA [Concomitant]
     Active Substance: BILASTINE
     Indication: ASTHMA
     Dosage: 20 MILLIGRAM
     Route: 048
  8. NEUROTROPIN [RABBIT VACCINIA EXTRACT] [Concomitant]
     Active Substance: ORYCTOLAGUS CUNICULUS SKIN
     Indication: BACK PAIN
     Dosage: 4 DOSAGE FORM
     Route: 048

REACTIONS (1)
  - Decreased appetite [Recovering/Resolving]

NARRATIVE: CASE EVENT DATE: 202101
